FAERS Safety Report 6136717-0 (Version None)
Quarter: 2009Q1

REPORT INFORMATION
  Report Type: 
  Country: None (occurrence: None)
  Receive Date: 20090330
  Receipt Date: 20090320
  Transmission Date: 20090719
  Serious: Yes (Other)
  Sender: FDA-Public Use
  Company Number: PHHY2009BR10626

PATIENT
  Age: 34 Year
  Sex: Female

DRUGS (1)
  1. TEGRETOL [Suspect]
     Indication: CONVULSION
     Dosage: UNK
     Route: 048
     Dates: start: 20090320

REACTIONS (2)
  - SOMNOLENCE [None]
  - SUICIDE ATTEMPT [None]
